FAERS Safety Report 9697969 (Version 2)
Quarter: 2013Q4

REPORT INFORMATION
  Report Type: Spontaneous
  Country: JP (occurrence: JP)
  Receive Date: 20131120
  Receipt Date: 20131210
  Transmission Date: 20140711
  Serious: Yes (Hospitalization, Other)
  Sender: FDA-Public Use
  Company Number: JP-PFIZER INC-2013329544

PATIENT
  Age: 70 Year
  Sex: Female

DRUGS (3)
  1. AMLODIN [Suspect]
     Indication: HYPERTENSION
     Dosage: 2.5 MG, UNK
     Route: 048
     Dates: start: 201201, end: 20130408
  2. CRESTOR [Suspect]
     Indication: DYSLIPIDAEMIA
     Dosage: 2.5 MG, UNK
     Route: 048
     Dates: start: 201201, end: 20130408
  3. PABRON ACE [Suspect]
     Indication: NASOPHARYNGITIS
     Dosage: UNK
     Route: 048
     Dates: end: 20130408

REACTIONS (2)
  - Drug eruption [Recovered/Resolved]
  - Hepatic function abnormal [Recovering/Resolving]
